FAERS Safety Report 9204277 (Version 1)
Quarter: 2013Q2

REPORT INFORMATION
  Report Type: Spontaneous
  Country: US (occurrence: None)
  Receive Date: 20130401
  Receipt Date: 20130401
  Transmission Date: 20140414
  Serious: Yes (Life-Threatening, Hospitalization, Other)
  Sender: FDA-Public Use
  Company Number: None

PATIENT
  Age: 45 Year
  Sex: Female
  Weight: 98.88 kg

DRUGS (2)
  1. NUVARING [Suspect]
     Indication: CONTRACEPTION
     Route: 067
     Dates: start: 20080101, end: 20130228
  2. NUVARING [Suspect]
     Indication: MENSTRUATION IRREGULAR
     Route: 067
     Dates: start: 20080101, end: 20130228

REACTIONS (1)
  - Pulmonary embolism [None]
